FAERS Safety Report 9358808 (Version 1)
Quarter: 2013Q2

REPORT INFORMATION
  Report Type: Spontaneous
  Country: GB (occurrence: GB)
  Receive Date: 20130620
  Receipt Date: 20130620
  Transmission Date: 20140414
  Serious: Yes (Death)
  Sender: FDA-Public Use
  Company Number: GB-BAYER-2013-073630

PATIENT
  Age: 93 Year
  Sex: Female

DRUGS (2)
  1. ACETYLSALICYLIC ACID({=100 MG) [Suspect]
  2. ALENDRONATE SODIUM [Suspect]

REACTIONS (2)
  - Small intestinal haemorrhage [Fatal]
  - Melaena [Fatal]
